FAERS Safety Report 24186041 (Version 1)
Quarter: 2024Q3

REPORT INFORMATION
  Report Type: Spontaneous
  Country: CN (occurrence: CN)
  Receive Date: 20240807
  Receipt Date: 20240807
  Transmission Date: 20241016
  Serious: Yes (Hospitalization)
  Sender: BEIGENE
  Company Number: CN-BEIGENE-BGN-2024-012056

PATIENT

DRUGS (7)
  1. TISLELIZUMAB [Suspect]
     Active Substance: TISLELIZUMAB
     Indication: Pancreatic carcinoma
     Dosage: 200 MILLIGRAM
     Route: 041
     Dates: start: 20240707
  2. GEMCITABINE [Suspect]
     Active Substance: GEMCITABINE
     Indication: Pancreatic carcinoma
     Dosage: 1000 MILLIGRAM
     Route: 041
     Dates: start: 20240705
  3. PACLITAXEL [Suspect]
     Active Substance: PACLITAXEL
     Indication: Pancreatic carcinoma
     Dosage: 125 MILLIGRAM
     Route: 041
     Dates: start: 20240705
  4. ACYCLOVIR [Suspect]
     Active Substance: ACYCLOVIR
     Indication: Herpes zoster
     Dosage: 250 MILLIGRAM, BID
     Route: 041
     Dates: start: 20240628, end: 20240705
  5. VALACYCLOVIR HYDROCHLORIDE [Concomitant]
     Active Substance: VALACYCLOVIR HYDROCHLORIDE
     Indication: Herpes zoster
     Dosage: UNK
     Route: 048
  6. MUPIROCIN [Concomitant]
     Active Substance: MUPIROCIN
     Indication: Herpes zoster
     Dosage: UNK
     Route: 061
  7. PENCICLOVIR [Concomitant]
     Active Substance: PENCICLOVIR
     Indication: Herpes zoster
     Dosage: UNK
     Route: 061

REACTIONS (1)
  - Hepatic function abnormal [Recovering/Resolving]

NARRATIVE: CASE EVENT DATE: 20240708
